FAERS Safety Report 9511237 (Version 1)
Quarter: 2013Q3

REPORT INFORMATION
  Report Type: Spontaneous
  Country: US (occurrence: None)
  Receive Date: 20130909
  Receipt Date: 20130909
  Transmission Date: 20140515
  Serious: Yes (Disabling)
  Sender: FDA-Public Use
  Company Number: None

PATIENT
  Age: 65 Year
  Sex: Male
  Weight: 89.81 kg

DRUGS (6)
  1. KLONOPIN ACTAVIS RPH [Suspect]
     Indication: PANIC ATTACK
     Dosage: 2MG 1 PILL THREE TIMES A DAY BY MOUTH
     Route: 048
  2. AMBIEN [Concomitant]
  3. CYMBALTA [Concomitant]
  4. NEURONTIN [Concomitant]
  5. FISH OIL [Concomitant]
  6. CALCIUM [Concomitant]

REACTIONS (3)
  - Memory impairment [None]
  - Balance disorder [None]
  - Fall [None]
